FAERS Safety Report 4970174-2 (Version None)
Quarter: 2006Q2

REPORT INFORMATION
  Report Type: 
  Country: None (occurrence: None)
  Receive Date: 20060406
  Receipt Date: 20060321
  Transmission Date: 20061013
  Serious: Yes (Other)
  Sender: FDA-Public Use
  Company Number: DSA_60755_2006

PATIENT
  Age: 24 Year
  Sex: Female
  Weight: 28.123 kg

DRUGS (6)
  1. DIASTAT [Suspect]
     Indication: GRAND MAL CONVULSION
     Dosage: DF PRN RC
     Dates: start: 20050301
  2. LAMICTAL [Concomitant]
  3. TRILEPTAL [Concomitant]
  4. VALIUM [Concomitant]
  5. OS-CON [Concomitant]
  6. NEXIUM [Concomitant]

REACTIONS (1)
  - DRUG INEFFECTIVE [None]
